FAERS Safety Report 12442340 (Version 1)
Quarter: 2016Q2

REPORT INFORMATION
  Report Type: Spontaneous
  Country: US (occurrence: US)
  Receive Date: 20160607
  Receipt Date: 20160607
  Transmission Date: 20160815
  Serious: No
  Sender: FDA-Public Use
  Company Number: US-BELCHER PHARMACEUTICALS, LLC-2016VTS00018

PATIENT
  Age: 80 Year
  Sex: Female

DRUGS (1)
  1. CHLORDIAZEPOXIDE-CLIDINIUM [Suspect]
     Active Substance: CHLORDIAZEPOXIDE\CLIDINIUM
     Dosage: UNK
     Dates: end: 20160414

REACTIONS (5)
  - Pollakiuria [Unknown]
  - Dizziness [Unknown]
  - Rash [None]
  - Drug monitoring procedure not performed [None]
  - Withdrawal syndrome [Unknown]
